FAERS Safety Report 17216107 (Version 1)
Quarter: 2019Q4

REPORT INFORMATION
  Report Type: Other
  Country: CN (occurrence: CN)
  Receive Date: 20191230
  Receipt Date: 20191230
  Transmission Date: 20200122
  Serious: Yes (Other)
  Sender: FDA-Public Use
  Company Number: CN-GEHC-2019CSU006590

PATIENT

DRUGS (2)
  1. VISIPAQUE [Suspect]
     Active Substance: IODIXANOL
     Indication: ANGIOGRAM
     Dosage: 100 ML, SINGLE
     Route: 041
     Dates: start: 20191106, end: 20191106
  2. VISIPAQUE [Suspect]
     Active Substance: IODIXANOL
     Indication: PERIPHERAL ARTERIAL OCCLUSIVE DISEASE

REACTIONS (5)
  - Dyspnoea [Recovered/Resolved]
  - Blood pressure immeasurable [Recovered/Resolved]
  - Oedema mucosal [Recovered/Resolved]
  - Pallor [Recovered/Resolved]
  - Dysarthria [Recovered/Resolved]

NARRATIVE: CASE EVENT DATE: 20191106
